FAERS Safety Report 14636716 (Version 8)
Quarter: 2018Q4

REPORT INFORMATION
  Report Type: Spontaneous
  Country: DE (occurrence: DE)
  Receive Date: 20180314
  Receipt Date: 20181221
  Transmission Date: 20190204
  Serious: Yes (Death, Hospitalization, Other)
  Sender: FDA-Public Use
  Company Number: DE-GILEAD-2018-0325678

PATIENT
  Age: 75 Year
  Sex: Male

DRUGS (2)
  1. HARVONI [Suspect]
     Active Substance: LEDIPASVIR\SOFOSBUVIR
     Indication: HEPATITIS C
     Dosage: 1 DF, UNK
     Route: 065
     Dates: start: 201510
  2. RIBAVIRIN. [Suspect]
     Active Substance: RIBAVIRIN
     Indication: HEPATITIS C
     Dosage: 200 MG, QD
     Route: 065
     Dates: start: 201510

REACTIONS (6)
  - Glomerular filtration rate decreased [Unknown]
  - Asthenia [Unknown]
  - Hepatocellular carcinoma [Fatal]
  - Anaemia [Unknown]
  - Infection [Unknown]
  - Decreased appetite [Unknown]
